FAERS Safety Report 9376638 (Version 4)
Quarter: 2013Q4

REPORT INFORMATION
  Report Type: Spontaneous
  Country: US (occurrence: US)
  Receive Date: 20130701
  Receipt Date: 20131004
  Transmission Date: 20140711
  Serious: No
  Sender: FDA-Public Use
  Company Number: US-BIOGENIDEC-2013BI057183

PATIENT
  Sex: Female

DRUGS (2)
  1. TYSABRI [Suspect]
     Indication: MULTIPLE SCLEROSIS
     Route: 042
     Dates: start: 20111108, end: 20130402
  2. AVONEX [Concomitant]
     Indication: MULTIPLE SCLEROSIS
     Route: 030

REACTIONS (14)
  - Mitral valve prolapse [Unknown]
  - Blood test abnormal [Not Recovered/Not Resolved]
  - Haemoglobin decreased [Not Recovered/Not Resolved]
  - White blood cell count decreased [Not Recovered/Not Resolved]
  - Cardiac murmur [Not Recovered/Not Resolved]
  - Mental disability [Not Recovered/Not Resolved]
  - Anxiety [Recovered/Resolved with Sequelae]
  - Panic attack [Recovered/Resolved with Sequelae]
  - Herpes zoster [Recovered/Resolved]
  - Lymphocyte count increased [Unknown]
  - Pyrexia [Unknown]
  - Respiratory tract infection [Recovered/Resolved]
  - Cystitis [Unknown]
  - Fatigue [Not Recovered/Not Resolved]
